FAERS Safety Report 24645452 (Version 1)
Quarter: 2024Q4

REPORT INFORMATION
  Report Type: Spontaneous
  Country: HR (occurrence: HR)
  Receive Date: 20241121
  Receipt Date: 20241121
  Transmission Date: 20250115
  Serious: No
  Sender: ALKEM
  Company Number: HR-ALKEM LABORATORIES LIMITED-HR-ALKEM-2024-05095

PATIENT
  Age: 63 Year
  Sex: Male

DRUGS (2)
  1. OLANZAPINE [Suspect]
     Active Substance: OLANZAPINE
     Indication: Product used for unknown indication
     Dosage: UNK, (0.5%) AND (1%), PATCH
     Route: 065
  2. SAXAGLIPTIN [Suspect]
     Active Substance: SAXAGLIPTIN
     Indication: Product used for unknown indication
     Dosage: UNK, (0.5%) AND (1%), PATCH
     Route: 065

REACTIONS (2)
  - Dermatitis contact [Unknown]
  - Occupational exposure to product [Unknown]
